FAERS Safety Report 8182511-9 (Version None)
Quarter: 2012Q1

REPORT INFORMATION
  Report Type: 
  Country: None (occurrence: None)
  Receive Date: 20120305
  Receipt Date: 20120227
  Transmission Date: 20120608
  Serious: No
  Sender: FDA-Public Use
  Company Number: US-BIOGENIDEC-2009BI025262

PATIENT
  Age: 60 Year
  Sex: Female

DRUGS (2)
  1. TYSABRI [Suspect]
     Route: 042
     Dates: start: 20110408
  2. TYSABRI [Suspect]
     Indication: MULTIPLE SCLEROSIS
     Route: 042
     Dates: start: 20081117, end: 20101104

REACTIONS (10)
  - HYPOAESTHESIA [None]
  - MUSCULAR WEAKNESS [None]
  - ASTHENOPIA [None]
  - HEADACHE [None]
  - VISUAL IMPAIRMENT [None]
  - BLINDNESS [None]
  - COORDINATION ABNORMAL [None]
  - DEMENTIA [None]
  - DIPLOPIA [None]
  - MIGRAINE [None]
